FAERS Safety Report 5259072-7 (Version None)
Quarter: 2007Q1

REPORT INFORMATION
  Report Type: 
  Country: None (occurrence: None)
  Receive Date: 20070308
  Receipt Date: 20070226
  Transmission Date: 20070707
  Serious: Yes (Life-Threatening, Hospitalization)
  Sender: FDA-Public Use
  Company Number: GB-ABBOTT-05P-167-0310004-00

PATIENT
  Age: 42 Year
  Sex: Male
  Weight: 43 kg

DRUGS (12)
  1. LOPINAVIR-RITONAVIR [Suspect]
     Indication: SYSTEMIC ANTIVIRAL TREATMENT
     Route: 048
     Dates: start: 20050726, end: 20050805
  2. BACTRIM [Concomitant]
     Indication: INFECTION PROPHYLAXIS
     Route: 048
  3. FLUCONAZOLE [Concomitant]
     Indication: DRUG USE FOR UNKNOWN INDICATION
     Route: 048
  4. CYCLOPENTOLATE HCL [Concomitant]
     Indication: DRUG USE FOR UNKNOWN INDICATION
     Route: 061
  5. DEXAMETHASONE [Concomitant]
     Indication: DRUG USE FOR UNKNOWN INDICATION
  6. LAMIVUDINE [Concomitant]
     Indication: SYSTEMIC ANTIVIRAL TREATMENT
  7. LAMIVUDINE [Concomitant]
  8. TENOFOVIR DISOPROXIL FUMARATE [Concomitant]
     Indication: HIV INFECTION
  9. TENOFOVIR DISOPROXIL FUMARATE [Concomitant]
  10. TIMOLOL MALEATE [Concomitant]
     Indication: UVEITIS
  11. ATAZANAVIR-RITONAVIR [Concomitant]
     Indication: SYSTEMIC ANTIVIRAL TREATMENT
     Dosage: NOT REPORTED
  12. ABACAVIR [Concomitant]
     Indication: SYSTEMIC ANTIVIRAL TREATMENT
     Dosage: NOT REPORTED

REACTIONS (1)
  - INAPPROPRIATE ANTIDIURETIC HORMONE SECRETION [None]
